FAERS Safety Report 15703755 (Version 3)
Quarter: 2019Q1

REPORT INFORMATION
  Report Type: Spontaneous
  Country: DE (occurrence: DE)
  Receive Date: 20181210
  Receipt Date: 20190111
  Transmission Date: 20190417
  Serious: Yes (Life-Threatening, Other)
  Sender: FDA-Public Use
  Company Number: DE-GLAXOSMITHKLINE-DE2018220479

PATIENT
  Age: 46 Year
  Sex: Male
  Weight: 94 kg

DRUGS (22)
  1. SUMATRIPTAN. [Concomitant]
     Active Substance: SUMATRIPTAN
     Dosage: 6 MG, BID
     Route: 058
  2. DICLOFENAC (DICLOFENAC SODIUM) [Suspect]
     Active Substance: DICLOFENAC SODIUM
     Indication: PRODUCT USED FOR UNKNOWN INDICATION
     Dosage: UNK
     Route: 065
  3. PREDNISOLONE. [Concomitant]
     Active Substance: PREDNISOLONE
     Indication: PRODUCT USED FOR UNKNOWN INDICATION
     Dosage: 10 MG, QD
     Route: 065
  4. VERAPAMIL [Concomitant]
     Active Substance: VERAPAMIL HYDROCHLORIDE
     Dosage: 240 MG, QD
     Route: 065
  5. TIOTROPIUM BROMIDE [Concomitant]
     Active Substance: TIOTROPIUM BROMIDE
     Indication: PRODUCT USED FOR UNKNOWN INDICATION
     Dosage: 1 ?G/L, BID
     Route: 065
  6. BEROTEC [Concomitant]
     Active Substance: FENOTEROL HYDROBROMIDE
     Indication: PRODUCT USED FOR UNKNOWN INDICATION
     Dosage: 100 UG, PRN
     Route: 065
  7. DIAZEPAM. [Concomitant]
     Active Substance: DIAZEPAM
     Indication: PRODUCT USED FOR UNKNOWN INDICATION
     Dosage: UNK
     Route: 065
  8. ASPIRIN. [Concomitant]
     Active Substance: ASPIRIN
     Indication: PAIN
     Dosage: UNK
     Route: 065
  9. SPIRIVA [Concomitant]
     Active Substance: TIOTROPIUM BROMIDE MONOHYDRATE
     Indication: PRODUCT USED FOR UNKNOWN INDICATION
     Dosage: UNK (1-0-1-0)
     Route: 065
  10. PREDNISOLONE. [Concomitant]
     Active Substance: PREDNISOLONE
     Dosage: 20 MG, UNK
     Route: 065
     Dates: start: 2016
  11. SUMATRIPTAN. [Concomitant]
     Active Substance: SUMATRIPTAN
     Indication: PRODUCT USED FOR UNKNOWN INDICATION
     Dosage: UNK
     Route: 048
  12. TAMSULOSIN [Concomitant]
     Active Substance: TAMSULOSIN
     Indication: PRODUCT USED FOR UNKNOWN INDICATION
     Dosage: 0.4 MG, QD
     Route: 065
  13. PALEXIA [Concomitant]
     Active Substance: TAPENTADOL HYDROCHLORIDE
     Indication: PAIN
     Dosage: UNK
     Route: 065
  14. INDOMETHACIN. [Concomitant]
     Active Substance: INDOMETHACIN
     Indication: PAIN
     Dosage: UNK
     Route: 065
  15. IBUPROFEN. [Concomitant]
     Active Substance: IBUPROFEN
     Indication: PAIN
     Dosage: UNK
     Route: 065
  16. PANTOPRAZOLE [Concomitant]
     Active Substance: PANTOPRAZOLE
     Indication: PRODUCT USED FOR UNKNOWN INDICATION
     Dosage: 20 MG, QD (1-0-0-0)
     Route: 065
  17. GLYCOPYRRONIUM BROMIDE [Concomitant]
     Active Substance: GLYCOPYRRONIUM
     Indication: PRODUCT USED FOR UNKNOWN INDICATION
     Dosage: 44 UG, QD
     Route: 045
  18. VERAPAMIL [Concomitant]
     Active Substance: VERAPAMIL HYDROCHLORIDE
     Indication: CLUSTER HEADACHE
     Dosage: 960 MG, BID
     Route: 065
  19. PROCHLORPERAZINE. [Concomitant]
     Active Substance: PROCHLORPERAZINE
     Indication: PAIN
     Dosage: UNK
     Route: 065
  20. TEGRETOL [Suspect]
     Active Substance: CARBAMAZEPINE
     Indication: PRODUCT USED FOR UNKNOWN INDICATION
     Dosage: UNK
     Route: 065
  21. IMIGRAN [Concomitant]
     Active Substance: SUMATRIPTAN SUCCINATE
     Indication: PRODUCT USED FOR UNKNOWN INDICATION
     Dosage: UNK
     Route: 065
  22. TIOTROPIUM BROMIDE [Concomitant]
     Active Substance: TIOTROPIUM BROMIDE
     Dosage: 1 DF, BID
     Route: 065

REACTIONS (73)
  - Eye pain [Unknown]
  - Depression [Unknown]
  - Arthralgia [Unknown]
  - Disturbance in attention [Unknown]
  - Tobacco abuse [Unknown]
  - Chest pain [Unknown]
  - Syncope [Unknown]
  - Flank pain [Unknown]
  - Feeling cold [Unknown]
  - Temperature intolerance [Unknown]
  - Facial pain [Unknown]
  - Hyperhidrosis [Unknown]
  - Seizure [Unknown]
  - Loss of libido [Unknown]
  - Temporomandibular joint syndrome [Unknown]
  - Drug abuse [Unknown]
  - Loss of consciousness [Unknown]
  - General physical health deterioration [Unknown]
  - Back pain [Unknown]
  - Personality change [Unknown]
  - Restlessness [Unknown]
  - Heart rate irregular [Unknown]
  - Pain in extremity [Unknown]
  - Pneumothorax [Unknown]
  - Diarrhoea [Unknown]
  - Insomnia [Unknown]
  - Physical deconditioning [Unknown]
  - Fatigue [Unknown]
  - Vestibular disorder [Unknown]
  - Asthma [Unknown]
  - Emotional disorder [Unknown]
  - Eczema [Unknown]
  - Musculoskeletal pain [Unknown]
  - Benign prostatic hyperplasia [Unknown]
  - Crying [Unknown]
  - Xanthelasma [Unknown]
  - Dysphagia [Unknown]
  - Peripheral swelling [Unknown]
  - Abdominal pain [Unknown]
  - Chronic obstructive pulmonary disease [Unknown]
  - Palpitations [Unknown]
  - Pain [Unknown]
  - Hot flush [Unknown]
  - Micturition disorder [Unknown]
  - Oromandibular dystonia [Unknown]
  - Pruritus [Unknown]
  - Increased appetite [Unknown]
  - Dyspnoea [Unknown]
  - Visual impairment [Unknown]
  - Dysuria [Unknown]
  - Cough [Unknown]
  - Myofascial pain syndrome [Unknown]
  - Substance abuse [Unknown]
  - Tachycardia [Unknown]
  - Anxiety [Unknown]
  - Memory impairment [Unknown]
  - Headache [Unknown]
  - Irritability [Unknown]
  - Umbilical hernia [Unknown]
  - Vertigo [Unknown]
  - Burns second degree [Unknown]
  - Anger [Unknown]
  - Choking sensation [Unknown]
  - Haematochezia [Unknown]
  - Head discomfort [Unknown]
  - Hypoaesthesia [Unknown]
  - Oral candidiasis [Unknown]
  - Skin disorder [Unknown]
  - Tension [Unknown]
  - Nausea [Unknown]
  - Abdominal distension [Unknown]
  - Thirst [Unknown]
  - Gait disturbance [Unknown]

NARRATIVE: CASE EVENT DATE: 2001
